FAERS Safety Report 6881522-0 (Version None)
Quarter: 2010Q3

REPORT INFORMATION
  Report Type: 
  Country: None (occurrence: None)
  Receive Date: 20100729
  Receipt Date: 20100719
  Transmission Date: 20110219
  Serious: Yes (Hospitalization)
  Sender: FDA-Public Use
  Company Number: FR-BIOGENIDEC-2010BI020974

PATIENT
  Age: 60 Year
  Sex: Male

DRUGS (10)
  1. AVONEX [Suspect]
     Indication: MULTIPLE SCLEROSIS
     Route: 030
     Dates: start: 20070901, end: 20100601
  2. KARDEGIC [Concomitant]
     Route: 048
  3. KARDEGIC [Concomitant]
     Route: 048
     Dates: start: 20100601
  4. TEMERIT [Concomitant]
     Route: 048
  5. APROVEL [Concomitant]
     Route: 048
  6. TAMSULOSINE [Concomitant]
     Route: 048
  7. CERIS [Concomitant]
     Route: 048
  8. SIMVASTATIN [Concomitant]
     Route: 048
  9. ZOLPIDEM [Concomitant]
     Route: 048
  10. LIORESAL [Concomitant]
     Indication: MUSCLE SPASTICITY
     Route: 048

REACTIONS (1)
  - ACUTE PULMONARY OEDEMA [None]
